FAERS Safety Report 18297832 (Version 1)
Quarter: 2020Q3

REPORT INFORMATION
  Report Type: Spontaneous
  Country: BR (occurrence: BR)
  Receive Date: 20200923
  Receipt Date: 20200923
  Transmission Date: 20201103
  Serious: Yes (Other)
  Sender: FDA-Public Use
  Company Number: BR-SUN PHARMACEUTICAL INDUSTRIES LTD-2020R1-261069

PATIENT
  Age: 34 Year
  Sex: Female

DRUGS (4)
  1. CILOSTAZOL. [Suspect]
     Active Substance: CILOSTAZOL
     Indication: SEGMENTED HYALINISING VASCULITIS
     Dosage: 200 MILLIGRAM, DAILY
     Route: 065
  2. WARFARIN [Suspect]
     Active Substance: WARFARIN
     Indication: SEGMENTED HYALINISING VASCULITIS
     Dosage: 5 MILLIGRAM, DAILY
     Route: 065
  3. HEPARIN [Suspect]
     Active Substance: HEPARIN SODIUM
     Indication: SEGMENTED HYALINISING VASCULITIS
     Dosage: 120 MILLIGRAM, DAILY
     Route: 065
  4. ACETYLSALICYLIC ACID [Suspect]
     Active Substance: ASPIRIN
     Indication: SEGMENTED HYALINISING VASCULITIS
     Dosage: 100 MILLIGRAM, DAILY
     Route: 065

REACTIONS (1)
  - Exposure during pregnancy [Unknown]
